FAERS Safety Report 10173043 (Version 1)
Quarter: 2014Q2

REPORT INFORMATION
  Report Type: Report from Study
  Country: US (occurrence: US)
  Receive Date: 20140515
  Receipt Date: 20140515
  Transmission Date: 20141212
  Serious: Yes (Other)
  Sender: FDA-Public Use
  Company Number: US-JNJFOC-20140504880

PATIENT
  Sex: Female

DRUGS (1)
  1. REMICADE [Suspect]
     Indication: RHEUMATOID ARTHRITIS
     Dosage: 3-100 MG VIALS
     Route: 042

REACTIONS (3)
  - Acute febrile neutrophilic dermatosis [Unknown]
  - Swelling [Unknown]
  - Arthralgia [Unknown]
